FAERS Safety Report 14971585 (Version 1)
Quarter: 2018Q2

REPORT INFORMATION
  Report Type: Spontaneous
  Country: FR (occurrence: FR)
  Receive Date: 20180604
  Receipt Date: 20180604
  Transmission Date: 20180711
  Serious: Yes (Other)
  Sender: FDA-Public Use
  Company Number: FR-TEVA-2018-FR-900478

PATIENT
  Age: 88 Year
  Sex: Male
  Weight: 92 kg

DRUGS (6)
  1. PLAVIX [Suspect]
     Active Substance: CLOPIDOGREL BISULFATE
     Route: 048
     Dates: start: 20151123
  2. LANSOPRAZOLE. [Suspect]
     Active Substance: LANSOPRAZOLE
     Route: 065
  3. SOTALOL. [Suspect]
     Active Substance: SOTALOL
     Route: 065
  4. PERMIXON [Suspect]
     Active Substance: HERBALS\SAW PALMETTO
     Route: 065
  5. CALCIPARINE [Suspect]
     Active Substance: HEPARIN CALCIUM
     Route: 058
     Dates: start: 20151120, end: 20160208
  6. LASILIX [Suspect]
     Active Substance: FUROSEMIDE
     Route: 065

REACTIONS (2)
  - Pruritus generalised [Unknown]
  - Eosinophilia [Unknown]

NARRATIVE: CASE EVENT DATE: 20151229
